FAERS Safety Report 13115974 (Version 2)
Quarter: 2017Q1

REPORT INFORMATION
  Report Type: Report from Study
  Country: US (occurrence: US)
  Receive Date: 20170116
  Receipt Date: 20170223
  Transmission Date: 20170428
  Serious: Yes (Other)
  Sender: FDA-Public Use
  Company Number: US-UCBSA-2016029043

PATIENT
  Age: 5 Year
  Sex: Female

DRUGS (4)
  1. BRIVIACT [Suspect]
     Active Substance: BRIVARACETAM
     Indication: PRODUCT USED FOR UNKNOWN INDICATION
     Dosage: UNK
  2. TRILEPTAL [Concomitant]
     Active Substance: OXCARBAZEPINE
     Indication: SEIZURE
  3. LEVETIRACETAM. [Suspect]
     Active Substance: LEVETIRACETAM
     Indication: SEIZURE
     Dosage: UNK
  4. ONFI [Concomitant]
     Active Substance: CLOBAZAM
     Indication: SEIZURE

REACTIONS (8)
  - Brain operation [Unknown]
  - Seizure [Unknown]
  - Fatigue [Unknown]
  - Petit mal epilepsy [Unknown]
  - Lacrimal disorder [Unknown]
  - Drug ineffective [Unknown]
  - Malaise [Unknown]
  - Decreased appetite [Unknown]
